FAERS Safety Report 4584064-0 (Version None)
Quarter: 2005Q1

REPORT INFORMATION
  Report Type: 
  Country: None (occurrence: None)
  Receive Date: 20050211
  Receipt Date: 20050127
  Transmission Date: 20050727
  Serious: No
  Sender: FDA-Public Use
  Company Number: 10044

PATIENT
  Age: 30 Year
  Sex: Male

DRUGS (3)
  1. METHOTREXATE [Suspect]
     Indication: PSORIATIC ARTHROPATHY
     Dosage: 7.5 MG WEEKLY, PO
     Route: 048
  2. FOLATE SODIUM [Concomitant]
  3. INDOMETHACIN [Concomitant]

REACTIONS (2)
  - ERECTILE DYSFUNCTION [None]
  - GYNAECOMASTIA [None]
